FAERS Safety Report 18447423 (Version 9)
Quarter: 2025Q3

REPORT INFORMATION
  Report Type: Spontaneous
  Country: PK (occurrence: PK)
  Receive Date: 20201101
  Receipt Date: 20250715
  Transmission Date: 20251020
  Serious: Yes (Other)
  Sender: AMGEN
  Company Number: PK-PFIZER INC-2020019226

PATIENT
  Age: 66 Year
  Sex: Male
  Weight: 80 kg

DRUGS (12)
  1. ENBREL [Suspect]
     Active Substance: ETANERCEPT
     Indication: Psoriatic arthropathy
     Dosage: 50 MG, WEEKLY
     Route: 058
     Dates: start: 202001
  2. ENBREL [Suspect]
     Active Substance: ETANERCEPT
     Route: 058
  3. ENBREL [Suspect]
     Active Substance: ETANERCEPT
     Dosage: 50 MG, WEEKLY
     Route: 058
     Dates: start: 20211023
  4. ENBREL [Suspect]
     Active Substance: ETANERCEPT
     Route: 058
  5. Nuberol [Concomitant]
     Indication: Pain
  6. Nuberol [Concomitant]
     Dosage: 1+1+1
  7. CELBEXX [Concomitant]
     Indication: Pain
  8. DELTACORTRIL [Concomitant]
     Active Substance: PREDNISOLONE
     Dosage: 5 MG, ALTERNATE DAY
  9. THYROXINE [Concomitant]
     Active Substance: LEVOTHYROXINE
     Dosage: 100 UG, 1X/DAY (BEFORE BREAKFAST)
  10. THYROXINE [Concomitant]
     Active Substance: LEVOTHYROXINE
     Dosage: 100 UG, 1+0+0 (BEFORE BREAKFAST)
  11. ESSO [Concomitant]
     Indication: Gastrointestinal disorder therapy
     Dosage: 40 MG, DAILY (IN THE MORNING)
  12. Lowplat [Concomitant]
     Dosage: 1+0+0

REACTIONS (6)
  - COVID-19 [Recovered/Resolved]
  - Off label use [Unknown]
  - Pain [Unknown]
  - Swelling [Unknown]
  - Joint range of motion decreased [Unknown]
  - Dyspnoea [Recovering/Resolving]
